FAERS Safety Report 9225760 (Version 1)
Quarter: 2013Q2

REPORT INFORMATION
  Report Type: Spontaneous
  Country: US (occurrence: US)
  Receive Date: 20130411
  Receipt Date: 20130411
  Transmission Date: 20140414
  Serious: No
  Sender: FDA-Public Use
  Company Number: US-PFIZER INC-2013112752

PATIENT
  Age: 52 Year
  Sex: Female
  Weight: 93.88 kg

DRUGS (3)
  1. LYRICA [Suspect]
     Indication: FIBROMYALGIA
     Dosage: 150 MG, 2X/DAY
     Route: 048
     Dates: start: 20130302
  2. LYRICA [Suspect]
     Indication: MIXED CONNECTIVE TISSUE DISEASE
  3. PLAQUENIL [Concomitant]
     Dosage: UNK

REACTIONS (2)
  - Off label use [Unknown]
  - Feeling abnormal [Unknown]
